FAERS Safety Report 7691753-8 (Version None)
Quarter: 2011Q3

REPORT INFORMATION
  Report Type: 
  Country: None (occurrence: None)
  Receive Date: 20110818
  Receipt Date: 20110802
  Transmission Date: 20111222
  Serious: Yes (Hospitalization, Other)
  Sender: FDA-Public Use
  Company Number: JP-GLAXOSMITHKLINE-B0737338A

PATIENT
  Sex: Male

DRUGS (10)
  1. ABILIFY [Concomitant]
     Dosage: 9MG PER DAY
     Route: 048
  2. ABILIFY [Concomitant]
     Indication: DELUSION
     Dosage: 12MG PER DAY
     Route: 048
     Dates: start: 20110628
  3. SEROQUEL [Concomitant]
     Indication: INSOMNIA
     Dosage: 100MG PER DAY
     Route: 048
     Dates: start: 20110601
  4. RABEPRAZOLE SODIUM [Concomitant]
     Indication: GASTRITIS
     Dosage: 10MG PER DAY
     Route: 048
     Dates: start: 20110401
  5. LAMICTAL [Suspect]
     Dosage: 50MG PER DAY
     Route: 048
     Dates: start: 20110721, end: 20110729
  6. LENDORMIN [Concomitant]
     Indication: INSOMNIA
     Dosage: .25MG PER DAY
     Route: 048
     Dates: start: 20110401
  7. ABILIFY [Concomitant]
     Dosage: 6MG PER DAY
     Route: 048
  8. MEILAX [Concomitant]
     Indication: ANXIETY
     Dosage: 1MG PER DAY
     Route: 048
     Dates: start: 20110510
  9. LAMICTAL [Suspect]
     Indication: MOOD SWINGS
     Dosage: 50MG TWICE PER DAY
     Route: 048
     Dates: start: 20110715, end: 20110719
  10. SILECE [Concomitant]
     Indication: INSOMNIA
     Dosage: 1MG PER DAY
     Route: 048
     Dates: start: 20110401

REACTIONS (7)
  - PYREXIA [None]
  - RASH [None]
  - PLATELET COUNT DECREASED [None]
  - HEPATIC FUNCTION ABNORMAL [None]
  - WHITE BLOOD CELL COUNT DECREASED [None]
  - PANCYTOPENIA [None]
  - CONJUNCTIVAL HYPERAEMIA [None]
